FAERS Safety Report 9031490 (Version 6)
Quarter: 2013Q2

REPORT INFORMATION
  Report Type: Report from Study
  Country: FR (occurrence: FR)
  Receive Date: 20130124
  Receipt Date: 20130503
  Transmission Date: 20140414
  Serious: Yes (Hospitalization)
  Sender: FDA-Public Use
  Company Number: FR-ROCHE-1166128

PATIENT
  Age: 58 Year
  Sex: Male
  Weight: 67.5 kg

DRUGS (17)
  1. BEVACIZUMAB [Suspect]
     Indication: NON-SMALL CELL LUNG CANCER
     Dosage: LAST DOSE RIOR TO SAE:14/NOV/2012, LAST DOSE 1100 MG
     Route: 042
     Dates: start: 20120605
  2. PACLITAXEL [Suspect]
     Indication: NON-SMALL CELL LUNG CANCER
     Dosage: LAST DOSE 280 MG, LAST DOSE PRIOR TO SAE 16/OCT/2012
     Route: 042
     Dates: start: 20120605
  3. CARBOPLATIN [Suspect]
     Indication: NON-SMALL CELL LUNG CANCER
     Dosage: LAST DOSE PRIOR TO SAE:16/OCT/2012, LAST DOSE 525 MG
     Route: 042
     Dates: start: 20120605
  4. TERCIAN [Concomitant]
     Indication: DEPRESSION
     Route: 048
  5. LAROXYL [Concomitant]
     Indication: DEPRESSION
     Route: 048
  6. LEXOMIL [Concomitant]
     Indication: DEPRESSION
     Route: 048
  7. VALIUM [Concomitant]
     Indication: DEPRESSION
     Route: 048
     Dates: start: 20121214
  8. PRIMPERAN (FRANCE) [Concomitant]
     Route: 048
     Dates: start: 20120919
  9. ZANIDIP [Concomitant]
     Indication: HYPERTENSION
     Route: 048
     Dates: start: 20120919
  10. RAMIPRIL [Concomitant]
     Indication: HYPERTENSION
     Route: 048
     Dates: start: 20120919
  11. RAMIPRIL [Concomitant]
     Route: 048
     Dates: start: 20121016
  12. INSULINE [Concomitant]
     Indication: DIABETES MELLITUS
     Route: 030
  13. LIORESAL [Concomitant]
     Route: 048
     Dates: start: 20121214
  14. CARBOCISTEINE [Concomitant]
     Indication: RESPIRATORY DISORDER
     Route: 048
     Dates: start: 20121214
  15. LANTUS [Concomitant]
     Indication: DIABETES MELLITUS
     Route: 030
     Dates: start: 20121214
  16. DAFALGAN [Concomitant]
     Indication: PAIN
     Route: 048
     Dates: start: 20121214
  17. MEGF0444A [Suspect]
     Indication: NON-SMALL CELL LUNG CANCER
     Dosage: LAST DOSE PRIOR TO SAE:14/NOV/2012, LAST DOSE 600 MG
     Route: 042
     Dates: start: 20120605

REACTIONS (1)
  - Diabetic foot [Recovered/Resolved with Sequelae]
